FAERS Safety Report 7963741-5 (Version None)
Quarter: 2011Q4

REPORT INFORMATION
  Report Type: 
  Country: None (occurrence: None)
  Receive Date: 20111208
  Receipt Date: 20111128
  Transmission Date: 20120403
  Serious: Yes (Other)
  Sender: FDA-Public Use
  Company Number: US-JNJFOC-20111111591

PATIENT
  Sex: Female
  Weight: 102.06 kg

DRUGS (4)
  1. METHADONE HCL [Concomitant]
     Indication: PAIN
     Route: 065
     Dates: start: 20110201
  2. REMICADE [Suspect]
     Indication: SARCOIDOSIS
     Route: 042
     Dates: start: 20080201, end: 20111102
  3. PREDNISONE TAB [Suspect]
     Indication: PRODUCT USED FOR UNKNOWN INDICATION
     Route: 065
  4. REMICADE [Suspect]
     Indication: CROHN'S DISEASE
     Route: 042
     Dates: start: 20080201, end: 20111102

REACTIONS (3)
  - NEUROPATHY PERIPHERAL [None]
  - ANXIETY [None]
  - DEPRESSION [None]
